FAERS Safety Report 8880491 (Version 1)
Quarter: 2012Q4

REPORT INFORMATION
  Report Type: 
  Country: US (occurrence: US)
  Receive Date: 20121031
  Receipt Date: 20121031
  Transmission Date: 20130627
  Serious: Yes (Hospitalization, Disabling, Other)
  Sender: FDA-Public Use
  Company Number: US-009507513-0704USA05889

PATIENT

DRUGS (6)
  1. FOSAMAX [Suspect]
     Indication: OSTEOPENIA
     Dosage: 5 mg, qd
     Route: 048
     Dates: start: 19971015
  2. FOSAMAX [Suspect]
     Dosage: 10 mg, qd
     Route: 048
     Dates: start: 19981022, end: 20010530
  3. FOSAMAX [Suspect]
     Dosage: 70 mg, QW
     Route: 048
     Dates: start: 20010531
  4. FOSAMAX [Suspect]
     Dosage: 70 mg, QW
     Route: 048
     Dates: start: 20020517
  5. LEVOXYL [Concomitant]
  6. THERAPY UNSPECIFIED [Concomitant]
     Indication: BLOOD PRESSURE
     Dates: start: 1997

REACTIONS (31)
  - Coronary artery disease [Unknown]
  - Osteonecrosis of jaw [Recovered/Resolved with Sequelae]
  - Hypercholesterolaemia [Not Recovered/Not Resolved]
  - Lumbar spinal stenosis [Unknown]
  - Carpal tunnel syndrome [Unknown]
  - Cataract [Unknown]
  - Jaw fracture [Unknown]
  - Squamous cell carcinoma of head and neck [Unknown]
  - Squamous cell carcinoma of head and neck [Unknown]
  - No therapeutic response [Unknown]
  - Hypoacusis [Unknown]
  - Tooth infection [Unknown]
  - Bone loss [Unknown]
  - Dental caries [Unknown]
  - Hypercholesterolaemia [Unknown]
  - Arthralgia [Recovering/Resolving]
  - Gastrooesophageal reflux disease [Unknown]
  - Fall [Unknown]
  - Nerve injury [Unknown]
  - Cataract [Unknown]
  - Pelvic mass [Unknown]
  - Radiculopathy [Unknown]
  - Synovial cyst [Unknown]
  - Hypertension [Unknown]
  - Age-related macular degeneration [Unknown]
  - Intraocular lens implant [Unknown]
  - Hypertension [Unknown]
  - Urinary tract infection [Unknown]
  - Urinary bladder atrophy [Unknown]
  - Spinal column stenosis [Unknown]
  - Intermittent claudication [Unknown]
